FAERS Safety Report 9926462 (Version 2)
Quarter: 2014Q1

REPORT INFORMATION
  Report Type: Spontaneous
  Country: US (occurrence: US)
  Receive Date: 20140226
  Receipt Date: 20140226
  Transmission Date: 20141002
  Serious: No
  Sender: FDA-Public Use
  Company Number: US-AMGEN-USASP2013068899

PATIENT
  Age: 60 Year
  Sex: Female
  Weight: 79.37 kg

DRUGS (4)
  1. ENBREL [Suspect]
     Indication: PRODUCT USED FOR UNKNOWN INDICATION
     Dosage: 50 MG/ML, QWK
     Route: 058
  2. HYDROCHLOROTH [Concomitant]
     Dosage: 12.5 MG, UNK
  3. STOOL SOFTENER [Concomitant]
     Dosage: 240 MG, UNK
  4. CALCIUM [Concomitant]
     Dosage: 500 UNK, UNK

REACTIONS (2)
  - Headache [Unknown]
  - Injection site erythema [Unknown]
